FAERS Safety Report 6658053 (Version 12)
Quarter: 2014Q1

REPORT INFORMATION
  Report Type: Spontaneous
  Country: US (occurrence: US)
  Receive Date: 20080605
  Receipt Date: 20140117
  Transmission Date: 20141002
  Serious: Yes (Other)
  Sender: FDA-Public Use
  Company Number: PHEH2008US04924

PATIENT
  Sex: Female

DRUGS (14)
  1. AREDIA [Suspect]
     Route: 041
     Dates: start: 2004
  2. ZOMETA [Suspect]
     Indication: METASTASES TO BONE
     Route: 041
     Dates: start: 200308
  3. ZOMETA [Suspect]
     Indication: METASTASES TO LIVER
  4. XELODA [Suspect]
  5. ERYTHROPOIETIN [Concomitant]
  6. PEGFILGRASTIM [Concomitant]
  7. TAXOTERE [Concomitant]
  8. HERCEPTIN ^GENENTECH^ [Concomitant]
  9. DECADRON                                /CAN/ [Concomitant]
  10. SYNTHROID [Concomitant]
  11. DILAUDID [Concomitant]
  12. COLACE [Concomitant]
  13. NORCO [Concomitant]
  14. TYLENOL [Concomitant]

REACTIONS (82)
  - Osteonecrosis of jaw [Unknown]
  - General physical health deterioration [Unknown]
  - Pain [Unknown]
  - Anxiety [Unknown]
  - Decreased interest [Unknown]
  - Injury [Unknown]
  - Disability [Unknown]
  - Economic problem [Unknown]
  - Medical observation [Unknown]
  - Compression fracture [Unknown]
  - Pleural effusion [Unknown]
  - Lung consolidation [Unknown]
  - Bone lesion [Unknown]
  - Spinal compression fracture [Unknown]
  - Tumour compression [Unknown]
  - Extradural neoplasm [Unknown]
  - Metastases to soft tissue [Unknown]
  - Spinal column stenosis [Unknown]
  - Intervertebral disc degeneration [Unknown]
  - Micturition urgency [Unknown]
  - Metastases to spine [Unknown]
  - Chest pain [Unknown]
  - Hypothyroidism [Unknown]
  - Epidural fibrosis [Unknown]
  - Atelectasis [Unknown]
  - Central nervous system lesion [Unknown]
  - Back pain [Unknown]
  - Pain in extremity [Unknown]
  - Dyspnoea [Unknown]
  - Osteosclerosis [Unknown]
  - Metastases to pelvis [Unknown]
  - Scoliosis [Unknown]
  - Spinal osteoarthritis [Unknown]
  - Benign mesothelioma [Unknown]
  - Cardiomegaly [Unknown]
  - Aortic arteriosclerosis [Unknown]
  - Hepatic steatosis [Unknown]
  - Ovarian cyst [Unknown]
  - Aortic calcification [Unknown]
  - Arteriosclerosis coronary artery [Unknown]
  - Kyphosis [Unknown]
  - Musculoskeletal pain [Unknown]
  - Arthropathy [Unknown]
  - Intervertebral disc protrusion [Unknown]
  - Intervertebral disc space narrowing [Unknown]
  - Facet joint syndrome [Unknown]
  - Metastases to central nervous system [Unknown]
  - Pathological fracture [Unknown]
  - Spinal fracture [Unknown]
  - Spinal cord compression [Unknown]
  - Cerebral small vessel ischaemic disease [Unknown]
  - Abdominal distension [Unknown]
  - Fluid retention [Unknown]
  - Abdominal pain [Unknown]
  - Anaemia [Unknown]
  - Dyspnoea exertional [Unknown]
  - Gingival bleeding [Unknown]
  - Neuropathy peripheral [Unknown]
  - Rheumatoid arthritis [Unknown]
  - Congestive cardiomyopathy [Unknown]
  - Kidney fibrosis [Unknown]
  - Scapula fracture [Unknown]
  - Humerus fracture [Unknown]
  - Palmar-plantar erythrodysaesthesia syndrome [Unknown]
  - Paraesthesia [Unknown]
  - Pericardial effusion [Unknown]
  - Tricuspid valve incompetence [Unknown]
  - Pulmonary valve incompetence [Unknown]
  - Mitral valve incompetence [Unknown]
  - Metastases to lymph nodes [Unknown]
  - Ventricular hypokinesia [Unknown]
  - Diastolic dysfunction [Unknown]
  - Left ventricular dysfunction [Unknown]
  - Metastases to bone [Unknown]
  - Malignant neoplasm progression [Unknown]
  - Metastases to lung [Unknown]
  - Dysphagia [Unknown]
  - Hypotension [Unknown]
  - Osteomyelitis [Unknown]
  - Cough [Unknown]
  - Asthenia [Unknown]
  - Pulmonary mass [Unknown]
